FAERS Safety Report 9767075 (Version 1)
Quarter: 2013Q4

REPORT INFORMATION
  Report Type: Spontaneous
  Country: US (occurrence: US)
  Receive Date: 20131217
  Receipt Date: 20131217
  Transmission Date: 20140711
  Serious: No
  Sender: FDA-Public Use
  Company Number: US-GLAXOSMITHKLINE-A1038426A

PATIENT
  Age: 76 Year
  Sex: Female

DRUGS (2)
  1. VOTRIENT [Suspect]
     Indication: RENAL CANCER
     Dosage: 600MG PER DAY
     Route: 048
     Dates: start: 2013
  2. RADIATION THERAPY [Concomitant]

REACTIONS (2)
  - Hepatic enzyme increased [Unknown]
  - Liver disorder [Unknown]
